FAERS Safety Report 8536376-3 (Version None)
Quarter: 2012Q3

REPORT INFORMATION
  Report Type: 
  Country: None (occurrence: None)
  Receive Date: 20120725
  Receipt Date: 20120718
  Transmission Date: 20120928
  Serious: Yes (Other)
  Sender: FDA-Public Use
  Company Number: JP-PFIZER INC-2012172981

PATIENT
  Age: 79 Year
  Sex: Male

DRUGS (1)
  1. UNASYN [Suspect]

REACTIONS (2)
  - VASCULITIS [None]
  - PULMONARY ALVEOLAR HAEMORRHAGE [None]
